FAERS Safety Report 8535794-7 (Version None)
Quarter: 2012Q3

REPORT INFORMATION
  Report Type: 
  Country: None (occurrence: None)
  Receive Date: 20120725
  Receipt Date: 20120717
  Transmission Date: 20120928
  Serious: Yes (Other)
  Sender: FDA-Public Use
  Company Number: CA-JNJFOC-20120307914

PATIENT
  Sex: Female
  Weight: 59 kg

DRUGS (2)
  1. IMURAN [Concomitant]
     Route: 048
  2. REMICADE [Suspect]
     Indication: COLITIS ULCERATIVE
     Route: 042
     Dates: start: 20090528

REACTIONS (2)
  - BLOOD URINE PRESENT [None]
  - SINUSITIS [None]
